FAERS Safety Report 14243964 (Version 2)
Quarter: 2017Q4

REPORT INFORMATION
  Report Type: Report from Study
  Country: US (occurrence: US)
  Receive Date: 20171201
  Receipt Date: 20171229
  Transmission Date: 20180321
  Serious: Yes (Hospitalization, Other)
  Sender: FDA-Public Use
  Company Number: US-SAOL THERAPEUTICS-2017SAO03395

PATIENT
  Age: 55 Year
  Sex: Female

DRUGS (5)
  1. SUFENTA [Suspect]
     Active Substance: SUFENTANIL CITRATE
     Dosage: 133.93 ?G, \DAY
     Route: 037
  2. BUPIVACAINE. [Suspect]
     Active Substance: BUPIVACAINE
     Dosage: 6.696 MG, \DAY
     Route: 037
  3. PRIALT [Suspect]
     Active Substance: ZICONOTIDE ACETATE
     Dosage: 2.0089 ?G, \DAY
     Route: 037
  4. BACLOFEN. [Suspect]
     Active Substance: BACLOFEN
     Dosage: 938 ?G, \DAY
     Route: 037
  5. PRIALT [Suspect]
     Active Substance: ZICONOTIDE ACETATE

REACTIONS (6)
  - Implant site scar [Not Recovered/Not Resolved]
  - Implant site extravasation [Recovered/Resolved]
  - Granuloma [Not Recovered/Not Resolved]
  - Chest pain [Not Recovered/Not Resolved]
  - Arachnoiditis [Unknown]
  - Arachnoid cyst [Not Recovered/Not Resolved]

NARRATIVE: CASE EVENT DATE: 20111017
